FAERS Safety Report 18397327 (Version 1)
Quarter: 2020Q4

REPORT INFORMATION
  Report Type: Spontaneous
  Country: DE (occurrence: DE)
  Receive Date: 20201019
  Receipt Date: 20201019
  Transmission Date: 20210114
  Serious: Yes (Life-Threatening, Hospitalization)
  Sender: FDA-Public Use
  Company Number: DE-TEVA-2020-DE-1838583

PATIENT
  Sex: Female

DRUGS (2)
  1. PROVAS COMP 80 MG/12.5 MG [Interacting]
     Active Substance: HYDROCHLOROTHIAZIDE\VALSARTAN
     Route: 065
     Dates: start: 2000
  2. CIPROFLOXACIN 250 MG TABLETTEN [Suspect]
     Active Substance: CIPROFLOXACIN
     Indication: CYSTITIS NONINFECTIVE
     Dosage: 250 MILLIGRAM DAILY;
     Route: 048
     Dates: start: 20200928

REACTIONS (5)
  - Hyponatraemia [Unknown]
  - Neurogenic bladder [Unknown]
  - Confusional state [Recovering/Resolving]
  - Drug interaction [Unknown]
  - Muscle spasms [Unknown]

NARRATIVE: CASE EVENT DATE: 20200928
